FAERS Safety Report 11584028 (Version 1)
Quarter: 2015Q3

REPORT INFORMATION
  Report Type: Spontaneous
  Country: US (occurrence: None)
  Receive Date: 20150930
  Receipt Date: 20150930
  Transmission Date: 20151125
  Serious: No
  Sender: FDA-Public Use
  Company Number: None

PATIENT
  Age: 72 Year
  Sex: Male
  Weight: 113.4 kg

DRUGS (2)
  1. DIVALPROEX ER 500 MG [Suspect]
     Active Substance: DIVALPROEX SODIUM
     Indication: SCHIZOAFFECTIVE DISORDER
     Dosage: 2 PILLS
     Route: 048
  2. PALIPERIDONE [Concomitant]
     Active Substance: PALIPERIDONE

REACTIONS (1)
  - Refusal of treatment by patient [None]

NARRATIVE: CASE EVENT DATE: 20150914
